FAERS Safety Report 8468789 (Version 11)
Quarter: 2012Q4

REPORT INFORMATION
  Report Type: 
  Country: US (occurrence: US)
  Receive Date: 20120321
  Receipt Date: 20121212
  Transmission Date: 20130627
  Serious: Yes (Hospitalization, Other)
  Sender: FDA-Public Use
  Company Number: US-ASTRAZENECA-2011SE32265

PATIENT
  Age: 63 Year
  Sex: Female

DRUGS (63)
  1. NEXIUM [Suspect]
     Indication: GASTROOESOPHAGEAL REFLUX DISEASE
     Dosage: TOOK NEXIUM FOR SEVERAL YEARS
     Route: 048
  2. NEXIUM [Suspect]
     Indication: GASTROOESOPHAGEAL REFLUX DISEASE
     Route: 048
     Dates: start: 2001, end: 201105
  3. NEXIUM [Suspect]
     Indication: GASTROOESOPHAGEAL REFLUX DISEASE
     Route: 048
     Dates: start: 20030701
  4. NEXIUM [Suspect]
     Indication: GASTROOESOPHAGEAL REFLUX DISEASE
     Route: 048
     Dates: start: 20031202
  5. NEXIUM [Suspect]
     Indication: GASTROOESOPHAGEAL REFLUX DISEASE
     Route: 048
     Dates: start: 20060612
  6. NEXIUM [Suspect]
     Indication: GASTROOESOPHAGEAL REFLUX DISEASE
     Route: 048
     Dates: start: 20080115
  7. NEXIUM [Suspect]
     Indication: GASTROOESOPHAGEAL REFLUX DISEASE
     Route: 048
     Dates: start: 20110304
  8. PEPCID [Concomitant]
     Indication: GASTROOESOPHAGEAL REFLUX DISEASE
     Dates: start: 201105
  9. BENICAR HCT [Concomitant]
     Indication: HYPERTENSION
     Dosage: 20/12.5 DAILY
     Dates: start: 20060127
  10. BENICAR HCT [Concomitant]
     Indication: HYPERTENSION
     Dates: start: 20080115
  11. BENICAR HCT [Concomitant]
     Indication: HYPERTENSION
     Dates: start: 201110
  12. FLORINAL/FIORINAL [Concomitant]
     Indication: HYPERTENSION
     Dates: start: 20060127
  13. FLORINAL/FIORINAL [Concomitant]
     Indication: HYPERTENSION
     Dates: start: 20080115
  14. LOVASTATIN [Concomitant]
     Indication: BLOOD CHOLESTEROL INCREASED
     Dates: start: 20110208
  15. RECLAST [Concomitant]
     Indication: OSTEOPOROSIS
  16. DAPSONE [Concomitant]
     Indication: VASCULITIS
     Dates: start: 201110
  17. ASATHIOPRINE [Concomitant]
     Indication: VASCULITIS
  18. PREVENTATIVE MAZALT [Concomitant]
     Indication: MIGRAINE
  19. PROPRANOLOL/PROPRANOLOL HCT [Concomitant]
     Indication: MIGRAINE
     Dates: start: 20050101
  20. PROPRANOLOL/PROPRANOLOL HCT [Concomitant]
     Indication: MIGRAINE
     Dates: start: 20031202
  21. PROPRANOLOL/PROPRANOLOL HCT [Concomitant]
     Indication: MIGRAINE
     Dates: start: 20060516
  22. PROPRANOLOL/PROPRANOLOL HCT [Concomitant]
     Indication: MIGRAINE
     Dates: start: 20080115
  23. PROPRANOLOL/PROPRANOLOL HCT [Concomitant]
     Indication: MIGRAINE
     Dates: start: 20110209
  24. CARBEMAZEPIN [Concomitant]
     Indication: TRIGEMINAL NEURALGIA
  25. ENABLEX [Concomitant]
     Indication: URINARY INCONTINENCE
     Dates: start: 20060127
  26. ENABLEX [Concomitant]
     Indication: URINARY INCONTINENCE
     Dates: start: 20080115
  27. ENABLEX [Concomitant]
     Indication: URINARY INCONTINENCE
     Dates: start: 201110
  28. LEXAPRO [Concomitant]
     Indication: DEPRESSION
     Dates: start: 20110208
  29. VIT D [Concomitant]
     Indication: OSTEOPOROSIS
  30. CALCIUM [Concomitant]
     Indication: OSTEOPOROSIS
  31. LIPITOR [Concomitant]
     Indication: BLOOD CHOLESTEROL
     Dates: start: 20031202
  32. LIPITOR [Concomitant]
     Indication: BLOOD CHOLESTEROL
     Dates: start: 20050101
  33. LOTREL [Concomitant]
     Indication: HYPERTENSION
     Dosage: 10/20 MG
     Dates: start: 20050101
  34. DITROPAN XL [Concomitant]
     Indication: POLLAKIURIA
     Dates: start: 20050101
  35. DITROPAN XL [Concomitant]
     Indication: POLLAKIURIA
     Dates: start: 20031202
  36. ALLEGRA D [Concomitant]
     Indication: RHINITIS ALLERGIC
     Dates: start: 20050101
  37. ALLEGRA D [Concomitant]
     Indication: RHINITIS ALLERGIC
     Dates: start: 20031202
  38. MAXALT [Concomitant]
     Indication: MIGRAINE
     Dates: start: 20050101
  39. MAXALT [Concomitant]
     Indication: MIGRAINE
     Dosage: 10 MG PRN
     Dates: start: 20060127
  40. MAXALT [Concomitant]
     Indication: MIGRAINE
     Dates: start: 20080115
  41. BENTYL [Concomitant]
     Indication: IRRITABLE BOWEL SYNDROME
     Dates: start: 20050101
  42. BENTYL [Concomitant]
     Indication: IRRITABLE BOWEL SYNDROME
     Dosage: 20 MG PRN
     Dates: start: 20060127
  43. PERIOSTAT [Concomitant]
     Dates: start: 20050101
  44. ACTONEL [Concomitant]
     Dates: start: 20050101
  45. ACTONEL [Concomitant]
     Dosage: 35 MG WEEKLY
     Dates: start: 20060127
  46. ACTONEL [Concomitant]
     Dosage: 35 MG PRN T PO Q SATURDAY AM
     Route: 048
  47. CRESTOR [Concomitant]
     Dates: start: 20060127
  48. ALTACE [Concomitant]
     Dates: start: 20031202
  49. WELLBUTRIN SR [Concomitant]
     Dates: start: 20050101
  50. BEXTRA [Concomitant]
     Dates: start: 20031202
  51. NITROQUICK [Concomitant]
     Route: 060
     Dates: start: 20031202
  52. SYNTHROID [Concomitant]
     Dates: start: 20100921
  53. SYNTHROID [Concomitant]
     Dates: start: 20111007
  54. IMURAN [Concomitant]
     Dates: start: 201110
  55. HYDROCHLOROTHIAZIDE [Concomitant]
     Dates: start: 20060619
  56. HYDROCHLOROTHIAZIDE [Concomitant]
     Dates: start: 20080115
  57. CELEBREX [Concomitant]
     Dates: start: 20060714
  58. OXYCOD/APAP [Concomitant]
     Dosage: 10-325 MG
     Dates: start: 20110321
  59. SMZ/TMP DS [Concomitant]
     Dosage: 800-160 MG
     Dates: start: 20110321
  60. DOXYCYCLINE [Concomitant]
     Dosage: 800-160 MG
     Dates: start: 20110321
  61. MESTINON [Concomitant]
     Dates: start: 20080115
  62. CLARITIN [Concomitant]
     Dates: start: 20080115
  63. FLONASE [Concomitant]
     Dates: start: 20080115

REACTIONS (19)
  - Radius fracture [Unknown]
  - Wrist fracture [Unknown]
  - Lower limb fracture [Unknown]
  - Upper limb fracture [Unknown]
  - Spinal osteoarthritis [Unknown]
  - Spinal cord compression [Unknown]
  - Spinal column stenosis [Unknown]
  - Tibia fracture [Unknown]
  - Forearm fracture [Unknown]
  - Femur fracture [Unknown]
  - Ulna fracture [Unknown]
  - Fall [Unknown]
  - Osteoporosis [Unknown]
  - Hypothyroidism [Unknown]
  - Oesophageal spasm [Unknown]
  - Gastrooesophageal reflux disease [Unknown]
  - Depression [Unknown]
  - Gastric ulcer [Unknown]
  - Gastritis [Unknown]
